FAERS Safety Report 16731342 (Version 2)
Quarter: 2019Q4

REPORT INFORMATION
  Report Type: Report from Study
  Country: US (occurrence: US)
  Receive Date: 20190822
  Receipt Date: 20191009
  Transmission Date: 20200122
  Serious: Yes (Death, Hospitalization, Other)
  Sender: FDA-Public Use
  Company Number: US-JNJFOC-20190701386

PATIENT
  Sex: Female
  Weight: 52 kg

DRUGS (7)
  1. IMBRUVICA [Suspect]
     Active Substance: IBRUTINIB
     Indication: CHRONIC LYMPHOCYTIC LEUKAEMIA
     Dosage: 420 MG, QD
     Route: 048
     Dates: start: 20180924
  2. COREG [Concomitant]
     Active Substance: CARVEDILOL
  3. LISINOPRIL. [Concomitant]
     Active Substance: LISINOPRIL
  4. PROVENTIL [Concomitant]
     Active Substance: ALBUTEROL
  5. SPIRIVA [Concomitant]
     Active Substance: TIOTROPIUM BROMIDE MONOHYDRATE
  6. AMBIEN [Concomitant]
     Active Substance: ZOLPIDEM TARTRATE
  7. LASIX [Concomitant]
     Active Substance: FUROSEMIDE

REACTIONS (7)
  - Renal failure [Fatal]
  - Acute respiratory failure [Fatal]
  - Pleural effusion [Unknown]
  - Cardiac arrest [Fatal]
  - Pneumonia [Unknown]
  - Chronic obstructive pulmonary disease [Fatal]
  - Left ventricular failure [Fatal]

NARRATIVE: CASE EVENT DATE: 2019
